FAERS Safety Report 7715365-2 (Version None)
Quarter: 2011Q3

REPORT INFORMATION
  Report Type: 
  Country: None (occurrence: None)
  Receive Date: 20110829
  Receipt Date: 20110815
  Transmission Date: 20111222
  Serious: Yes (Hospitalization)
  Sender: FDA-Public Use
  Company Number: US-ELI_LILLY_AND_COMPANY-US201008007584

PATIENT
  Sex: Female
  Weight: 55.329 kg

DRUGS (11)
  1. FORTEO [Suspect]
     Dosage: 20 UG, QOD
     Route: 058
  2. SYNTHROID [Concomitant]
  3. NEXIUM [Concomitant]
  4. FORTEO [Suspect]
     Dosage: 20 UG, DAILY (1/D)
     Route: 058
     Dates: start: 20101116
  5. FORTEO [Suspect]
     Dosage: 20 UG, QD
     Route: 058
  6. FORTEO [Suspect]
     Dosage: 20 UG, QD
     Route: 058
     Dates: end: 20110606
  7. NAMENDA [Concomitant]
  8. PRAVACHOL [Concomitant]
  9. FORTEO [Suspect]
     Indication: OSTEOPOROSIS
     Dosage: 20 UG, DAILY (1/D)
     Route: 058
     Dates: start: 20100801
  10. FORTEO [Suspect]
     Dosage: 20 UG, DAILY (1/D)
     Route: 058
     Dates: end: 20101014
  11. PLAVIX [Concomitant]

REACTIONS (9)
  - SLEEP DISORDER [None]
  - OFF LABEL USE [None]
  - DYSURIA [None]
  - MUSCLE SPASMS [None]
  - INJECTION SITE HAEMATOMA [None]
  - RENAL PAIN [None]
  - ABDOMINAL PAIN [None]
  - BACK PAIN [None]
  - FATIGUE [None]
